FAERS Safety Report 16005448 (Version 1)
Quarter: 2019Q1

REPORT INFORMATION
  Report Type: Spontaneous
  Country: US (occurrence: US)
  Receive Date: 20190226
  Receipt Date: 20190226
  Transmission Date: 20190418
  Serious: Yes (Hospitalization, Other)
  Sender: FDA-Public Use
  Company Number: US-BAYER-2019-037226

PATIENT
  Age: 87 Year
  Sex: Male

DRUGS (4)
  1. LISINOPRIL. [Concomitant]
     Active Substance: LISINOPRIL
     Dosage: 40 MG, QD
  2. FOLIC ACID. [Concomitant]
     Active Substance: FOLIC ACID
     Dosage: 1 MG
  3. CELEBREX [Concomitant]
     Active Substance: CELECOXIB
     Dosage: 20 MG
     Dates: start: 20170303
  4. BAYER ASPIRIN [Suspect]
     Active Substance: ASPIRIN
     Dosage: 650 MG
     Dates: start: 2017

REACTIONS (6)
  - Fall [Not Recovered/Not Resolved]
  - Rash generalised [Recovered/Resolved]
  - Pemphigoid [Not Recovered/Not Resolved]
  - Gastric ulcer haemorrhage [Recovered/Resolved]
  - Hiatus hernia [Not Recovered/Not Resolved]
  - Stress [None]

NARRATIVE: CASE EVENT DATE: 201703
